FAERS Safety Report 5744823-5 (Version None)
Quarter: 2008Q2

REPORT INFORMATION
  Report Type: 
  Country: None (occurrence: None)
  Receive Date: 20080520
  Receipt Date: 20080508
  Transmission Date: 20081010
  Serious: Yes (Other)
  Sender: FDA-Public Use
  Company Number: JP-PFIZER INC-2008041219

PATIENT
  Sex: Male

DRUGS (1)
  1. GABAPEN [Suspect]
     Indication: FIBROMYALGIA
     Dosage: DAILY DOSE:2400MG
     Route: 048

REACTIONS (3)
  - ABASIA [None]
  - OEDEMA [None]
  - WEIGHT INCREASED [None]
